FAERS Safety Report 9706951 (Version 1)
Quarter: 2013Q4

REPORT INFORMATION
  Report Type: Spontaneous
  Country: US (occurrence: US)
  Receive Date: 20131125
  Receipt Date: 20131125
  Transmission Date: 20140711
  Serious: No
  Sender: FDA-Public Use
  Company Number: US-PFIZER INC-2013333215

PATIENT
  Age: 62 Year
  Sex: Male

DRUGS (6)
  1. ERYTHROMYCIN [Suspect]
     Dosage: UNK
  2. LYRICA [Suspect]
     Dosage: 50 UNK, 2X/DAY
     Route: 048
  3. CARDURA [Suspect]
     Dosage: UNK
  4. NAPROXEN SODIUM [Suspect]
     Dosage: UNK
  5. GLIPIZIDE [Suspect]
     Dosage: UNK
  6. METFORMIN [Suspect]
     Dosage: UNK

REACTIONS (1)
  - Drug hypersensitivity [Unknown]
